FAERS Safety Report 16773808 (Version 1)
Quarter: 2019Q3

REPORT INFORMATION
  Report Type: Spontaneous
  Country: US (occurrence: US)
  Receive Date: 20190904
  Receipt Date: 20190904
  Transmission Date: 20191005
  Serious: Yes (Hospitalization, Other)
  Sender: FDA-Public Use
  Company Number: US-NOVOPROD-681886

PATIENT
  Sex: Male

DRUGS (3)
  1. NOVOLIN R [Suspect]
     Active Substance: INSULIN HUMAN
     Indication: TYPE 1 DIABETES MELLITUS
     Dosage: UNK
     Route: 058
  2. LEVEMIR [Suspect]
     Active Substance: INSULIN DETEMIR
     Indication: TYPE 1 DIABETES MELLITUS
     Dosage: 90 UNITS A DAY BUT INITIALLY REPORTED 50 UNITS AT BEDTIME
     Route: 058
     Dates: start: 2017
  3. NOVOLOG [Suspect]
     Active Substance: INSULIN ASPART
     Indication: TYPE 1 DIABETES MELLITUS
     Dosage: 15 IU, TID (PER MEAL)
     Route: 058
     Dates: start: 1989

REACTIONS (7)
  - Blood glucose decreased [Unknown]
  - Condition aggravated [Unknown]
  - Macular oedema [Not Recovered/Not Resolved]
  - Hospitalisation [Unknown]
  - Schizophrenia [Unknown]
  - Blood glucose increased [Recovered/Resolved]
  - Hypoacusis [Unknown]

NARRATIVE: CASE EVENT DATE: 2018
